FAERS Safety Report 6640530-5 (Version None)
Quarter: 2010Q1

REPORT INFORMATION
  Report Type: 
  Country: None (occurrence: None)
  Receive Date: 20100318
  Receipt Date: 20100308
  Transmission Date: 20100710
  Serious: Yes (Hospitalization, Disabling, Other)
  Sender: FDA-Public Use
  Company Number: US-MERCK-1003USA00773

PATIENT
  Age: 66 Year
  Sex: Female
  Weight: 68 kg

DRUGS (6)
  1. FOSAMAX [Suspect]
     Indication: OSTEOPENIA
     Route: 048
     Dates: start: 20050101, end: 20080101
  2. ADVAIR DISKUS 100/50 [Concomitant]
     Indication: ASTHMA
     Route: 065
  3. IMIPRAMINE HYDROCHLORIDE [Concomitant]
     Indication: NERVOUS SYSTEM DISORDER
     Route: 065
  4. XANAX [Concomitant]
     Indication: NERVOUS SYSTEM DISORDER
     Route: 065
  5. BONIVA [Suspect]
     Indication: OSTEOPENIA
     Route: 065
  6. CITRACAL [Concomitant]
     Indication: OSTEOPENIA
     Route: 065

REACTIONS (7)
  - FALL [None]
  - FEMUR FRACTURE [None]
  - FRACTURE NONUNION [None]
  - GASTROOESOPHAGEAL REFLUX DISEASE [None]
  - IMPAIRED HEALING [None]
  - NEPHROLITHIASIS [None]
  - SPINAL OSTEOARTHRITIS [None]
